FAERS Safety Report 8865744 (Version 1)
Quarter: 2012Q4

REPORT INFORMATION
  Report Type: 
  Country: US (occurrence: US)
  Receive Date: 20121024
  Receipt Date: 20121024
  Transmission Date: 20130627
  Serious: No
  Sender: FDA-Public Use
  Company Number: US-AMGEN-USASP2012004549

PATIENT
  Age: 51 Year
  Sex: Female
  Weight: 120.18 kg

DRUGS (11)
  1. ENBREL [Suspect]
     Indication: PRODUCT USED FOR UNKNOWN INDICATION
     Dosage: 50 mg, qwk
     Route: 058
  2. RAPAMUNE [Concomitant]
  3. PREDNISONE [Concomitant]
     Dosage: 10 mg, UNK
  4. MELOXICAM [Concomitant]
     Dosage: 15 mg, UNK
  5. AVAPRO [Concomitant]
     Dosage: 150 mg, UNK
  6. HYDROCHLOROTHIAZIDE [Concomitant]
     Dosage: 12.5 mg, UNK
  7. CLONIDINE [Concomitant]
     Dosage: 0.1 mg, UNK
  8. CRESTOR [Concomitant]
     Dosage: 10 mg, UNK
  9. CALCIUM [Concomitant]
  10. GLUCOSAMINE/MSM [Concomitant]
  11. METHOTREXATE [Concomitant]
     Dosage: 1 g, UNK

REACTIONS (1)
  - Nasopharyngitis [Unknown]
